FAERS Safety Report 8570838-8 (Version None)
Quarter: 2012Q3

REPORT INFORMATION
  Report Type: 
  Country: None (occurrence: None)
  Receive Date: 20120806
  Receipt Date: 20120726
  Transmission Date: 20120928
  Serious: Yes (Hospitalization, Other)
  Sender: FDA-Public Use
  Company Number: US-BIOGENIDEC-2011BI030357

PATIENT
  Age: 49 Year
  Sex: Female

DRUGS (13)
  1. TYSABRI [Suspect]
     Indication: MULTIPLE SCLEROSIS
     Route: 042
     Dates: start: 20070724, end: 20110722
  2. PROTONIX [Concomitant]
  3. CRESTOR [Concomitant]
  4. MOBIC [Concomitant]
  5. MULTI-VITAMIN [Concomitant]
  6. VITAMIN D [Concomitant]
  7. INSULIN [Concomitant]
  8. SYNTHROID [Concomitant]
  9. BUSPAR [Concomitant]
  10. CYMBALTA [Concomitant]
  11. VICODIN [Concomitant]
  12. VESICARE [Concomitant]
  13. FLONASE [Concomitant]
     Route: 045

REACTIONS (2)
  - WHITE BLOOD CELL COUNT DECREASED [None]
  - B-CELL LYMPHOMA [None]
